FAERS Safety Report 5029154-3 (Version None)
Quarter: 2006Q2

REPORT INFORMATION
  Report Type: 
  Country: None (occurrence: None)
  Receive Date: 20060619
  Receipt Date: 20060613
  Transmission Date: 20061013
  Serious: Yes (Life-Threatening, Hospitalization)
  Sender: FDA-Public Use
  Company Number: 2006AP02721

PATIENT
  Age: 68 Year
  Sex: Male

DRUGS (2)
  1. LOSEC [Suspect]
     Indication: REFLUX OESOPHAGITIS
     Route: 048
     Dates: start: 20060401, end: 20060414
  2. LOSEC [Suspect]
     Route: 048
     Dates: start: 20060401, end: 20060401

REACTIONS (8)
  - ASTHENIA [None]
  - COUGH [None]
  - DRUG HYPERSENSITIVITY [None]
  - EYELID OEDEMA [None]
  - HYPERSENSITIVITY [None]
  - MULTI-ORGAN DISORDER [None]
  - MYALGIA [None]
  - OEDEMA PERIPHERAL [None]
